FAERS Safety Report 22248745 (Version 1)
Quarter: 2023Q2

REPORT INFORMATION
  Report Type: Spontaneous
  Country: US (occurrence: US)
  Receive Date: 20230425
  Receipt Date: 20230425
  Transmission Date: 20230722
  Serious: No
  Sender: FDA-Public Use
  Company Number: US-APOTEX-2022AP017652

PATIENT
  Age: 78 Year
  Sex: Female

DRUGS (1)
  1. IMIQUIMOD [Suspect]
     Active Substance: IMIQUIMOD
     Indication: Pseudolymphoma
     Dosage: UNK, T.I.W
     Route: 061

REACTIONS (3)
  - Skin haemorrhage [Unknown]
  - Skin irritation [Unknown]
  - Nipple disorder [Unknown]
